FAERS Safety Report 10208951 (Version 1)
Quarter: 2014Q2

REPORT INFORMATION
  Report Type: Spontaneous
  Country: US (occurrence: US)
  Receive Date: 20140530
  Receipt Date: 20140530
  Transmission Date: 20141212
  Serious: Yes (Other)
  Sender: FDA-Public Use
  Company Number: US-B.I. PHARMACEUTICALS,INC./RIDGEFIELD-2014-BI-23748BP

PATIENT
  Sex: Male
  Weight: 82 kg

DRUGS (2)
  1. COMBIVENT [Suspect]
     Indication: CHRONIC OBSTRUCTIVE PULMONARY DISEASE
     Dosage: STRENGTH: 18 MCG PER 103 MCG
     Route: 055
     Dates: start: 2011, end: 2013
  2. COMBIVENT RESPIMAT [Concomitant]
     Indication: CHRONIC OBSTRUCTIVE PULMONARY DISEASE
     Dosage: DOSE PER APPLICATION: 20 MCG PER 100MCG
     Route: 055
     Dates: start: 2013

REACTIONS (1)
  - Dementia [Not Recovered/Not Resolved]
